FAERS Safety Report 24195019 (Version 1)
Quarter: 2024Q3

REPORT INFORMATION
  Report Type: Spontaneous
  Country: CN (occurrence: CN)
  Receive Date: 20240809
  Receipt Date: 20240809
  Transmission Date: 20241017
  Serious: Yes (Hospitalization, Other)
  Sender: MEITHEAL PHARMACEUTICALS
  Company Number: CN-MEITHEAL-2024MPLIT00229

PATIENT
  Age: 22 Year
  Sex: Male

DRUGS (6)
  1. BLEOMYCIN [Suspect]
     Active Substance: BLEOMYCIN SULFATE
     Indication: Testicular cancer metastatic
     Dosage: ON DAYS 1-3 IN A 21 DAYS CYCLE FOR RECEIVED FOUR SUCCESSIVE CYCLES
     Route: 042
     Dates: start: 20220506, end: 20220716
  2. BLEOMYCIN [Suspect]
     Active Substance: BLEOMYCIN SULFATE
     Dosage: ON DAYS 1-3 IN A 21 DAYS CYCLE FOR 5TH CYCLE
     Route: 042
  3. ETOPOSIDE [Suspect]
     Active Substance: ETOPOSIDE
     Indication: Testicular cancer metastatic
     Dosage: ON DAYS 1-3 21-DAY CYCLE INTERVALS
     Route: 042
     Dates: start: 20220506, end: 20220716
  4. ETOPOSIDE [Suspect]
     Active Substance: ETOPOSIDE
     Dosage: ON DAYS 1-3 21-DAY CYCLE INTERVALS AT 5 TH CYCLE
     Route: 042
  5. CISPLATIN [Suspect]
     Active Substance: CISPLATIN
     Indication: Testicular cancer metastatic
     Dosage: ON DAYS 1-3 21-DAY CYCLE INTERVALS
     Route: 042
     Dates: start: 20220506, end: 20220716
  6. CISPLATIN [Suspect]
     Active Substance: CISPLATIN
     Dosage: ON DAYS 1-3 21-DAY CYCLE INTERVALS AT 5TH CYCLE
     Route: 042

REACTIONS (4)
  - Cataract [Recovered/Resolved]
  - Myelosuppression [Recovered/Resolved]
  - Decreased appetite [Recovered/Resolved]
  - Alanine aminotransferase increased [Recovered/Resolved]
